FAERS Safety Report 23886834 (Version 2)
Quarter: 2024Q2

REPORT INFORMATION
  Report Type: Report from Study
  Country: US (occurrence: US)
  Receive Date: 20240522
  Receipt Date: 20240612
  Transmission Date: 20240716
  Serious: Yes (Hospitalization, Other)
  Sender: FDA-Public Use
  Company Number: US-ABBVIE-5769139

PATIENT
  Age: 60 Year
  Sex: Male
  Weight: 113 kg

DRUGS (35)
  1. HUMIRA [Suspect]
     Active Substance: ADALIMUMAB
     Indication: Crohn^s disease
     Dosage: FORM STRENGTH: 40 MG/0.4 ML , CITRATE FREE
     Route: 058
     Dates: start: 20221101
  2. HUMIRA [Suspect]
     Active Substance: ADALIMUMAB
     Dosage: FORM STRENGTH: 40 MG/0.4 ML , CITRATE FREE
     Route: 058
  3. NIZORAL [Concomitant]
     Active Substance: KETOCONAZOLE
     Indication: Product used for unknown indication
     Dosage: STRENGTH: 2%, APPLY TOPICALLY TO AFFECTED AREA(S) ONCE DAILY IF NEEDED. LATHER ON DAMP SCALP, LEA...
     Route: 061
  4. NIZORAL [Concomitant]
     Active Substance: KETOCONAZOLE
     Indication: Product used for unknown indication
     Dosage: STRENGTH: 2%, APPLY TOPICALLY TO AFFECTED AREA(S) ONCE DAILY IF NEEDED.
     Route: 061
  5. Fish oi [Concomitant]
     Indication: Product used for unknown indication
     Route: 048
  6. ZOSYN [Concomitant]
     Active Substance: PIPERACILLIN SODIUM\TAZOBACTAM SODIUM
     Indication: Product used for unknown indication
     Dosage: 4.5 G IN D5W (MINIBAG+) 100 ML, ONE TIME
     Route: 042
  7. SODIUM CHLORIDE [Concomitant]
     Active Substance: SODIUM CHLORIDE
     Indication: Product used for unknown indication
     Dosage: 0.9 % SYRINGE 10 ML,  EACH TIME PRN
     Route: 042
  8. SODIUM CHLORIDE [Concomitant]
     Active Substance: SODIUM CHLORIDE
     Indication: Product used for unknown indication
     Dosage: 0.9 % SYRINGE 5 ML,  EACH TIME PRN
     Route: 042
  9. SODIUM CHLORIDE [Concomitant]
     Active Substance: SODIUM CHLORIDE
     Indication: Product used for unknown indication
     Dosage: 0.9% 1000 ML IV SOLUTION 75 ML/HR, CONTINUOUS
     Route: 042
  10. TYLENOL EXTRA STRENGTH [Concomitant]
     Active Substance: ACETAMINOPHEN
     Indication: Product used for unknown indication
     Dosage: 500 MG TABLET,  TAKE AN ADDITIONAL 1000 MG EVERY 8 HOURS AS NEEDED. MAX ACETAMINOPHEN DOSE: 4000 ...
     Route: 048
  11. VITAMIN C [Concomitant]
     Active Substance: ASCORBIC ACID
     Indication: Product used for unknown indication
     Route: 048
  12. ECOTRIN [Concomitant]
     Active Substance: ASPIRIN
     Indication: Product used for unknown indication
     Route: 048
  13. IMURAN [Concomitant]
     Active Substance: AZATHIOPRINE
     Indication: Product used for unknown indication
     Dosage: STRENGTH: 50 MG TABLET
     Route: 048
  14. VITAMIN D3 [Concomitant]
     Active Substance: CHOLECALCIFEROL
     Indication: Product used for unknown indication
     Route: 048
  15. TUMS [Concomitant]
     Active Substance: CALCIUM CARBONATE
     Indication: Product used for unknown indication
     Dosage: DOSE: 500-1000 MG, Q4H PRN
     Route: 048
  16. CLEOCIN [Concomitant]
     Active Substance: CLINDAMYCIN PHOSPHATE
     Indication: Product used for unknown indication
     Dosage: 900 MG/50 ML D5W
  17. DILAUDID [Concomitant]
     Active Substance: HYDROMORPHONE HYDROCHLORIDE
     Indication: Product used for unknown indication
     Dosage: 0.3-0.5 MG Q2H PRN
     Route: 042
  18. PRINIVIL [Concomitant]
     Active Substance: LISINOPRIL
     Indication: Product used for unknown indication
     Route: 048
     Dates: start: 20240520
  19. ELEMENTAL F [Concomitant]
     Indication: Product used for unknown indication
     Route: 048
  20. PRINZIDE [Concomitant]
     Active Substance: HYDROCHLOROTHIAZIDE\LISINOPRIL
     Indication: Product used for unknown indication
     Dosage: 20-25 MG TABLET
     Route: 048
  21. ZESTORETIC [Concomitant]
     Active Substance: HYDROCHLOROTHIAZIDE\LISINOPRIL
     Indication: Product used for unknown indication
     Dosage: 20-25 MG TABLET
     Route: 048
  22. TYLENOL [Concomitant]
     Active Substance: ACETAMINOPHEN
     Indication: Product used for unknown indication
     Dosage: 650 MG TABLET, Q4H PRN
     Route: 048
  23. ZESTRIL [Concomitant]
     Active Substance: LISINOPRIL
     Indication: Product used for unknown indication
     Route: 048
  24. MELATONIN [Concomitant]
     Active Substance: MELATONIN
     Indication: Product used for unknown indication
     Dosage: BEDTIME PRN MRX1
     Route: 048
  25. NARCAN [Concomitant]
     Active Substance: NALOXONE HYDROCHLORIDE
     Indication: Product used for unknown indication
     Dosage: 0.4 MG/ML INJECTION VIAL, Q1 MIN PRN
     Route: 042
  26. ZOFRAN [Concomitant]
     Active Substance: ONDANSETRON HYDROCHLORIDE
     Indication: Product used for unknown indication
     Dosage: ONDANSETRON 4 MG 4 MG ON THE TONGUE ORALLY DISINTEGRATING TABLET,  Q8H PRN
     Route: 050
  27. ZOFRAN [Concomitant]
     Active Substance: ONDANSETRON HYDROCHLORIDE
     Indication: Product used for unknown indication
     Dosage: ONDANSETRON 4 MG, Q8H PRN
     Route: 042
  28. ROXICODONE [Concomitant]
     Active Substance: OXYCODONE HYDROCHLORIDE
     Indication: Product used for unknown indication
     Dosage: Q4H PRN, 5-10 MG IMMEDIATE RELEASE TABLET
     Route: 048
  29. MIRALAX [Concomitant]
     Active Substance: POLYETHYLENE GLYCOL 3350
     Indication: Product used for unknown indication
     Dosage: DAILY PRN, ORAL/NG TUBE
  30. COMPAZINE [Concomitant]
     Active Substance: PROCHLORPERAZINE MALEATE
     Indication: Product used for unknown indication
     Dosage: Q6H PRN
     Route: 048
  31. COMPAZINE [Concomitant]
     Active Substance: PROCHLORPERAZINE MALEATE
     Indication: Product used for unknown indication
     Dosage: Q6H PRN,  10 MG/2 ML (5 MG/ML) INJECTION
     Route: 042
  32. SENNA [Concomitant]
     Active Substance: SENNA LEAF\SENNOSIDES\SENNOSIDES A AND B
     Indication: Product used for unknown indication
     Dosage: 8.6- 17.2 MG, BID PRN
     Route: 048
  33. VANCOCIN [Concomitant]
     Active Substance: VANCOMYCIN HYDROCHLORIDE
     Indication: Product used for unknown indication
     Dosage: 1.75 GRAM/500 ML D5W (FINAL CONCENTRATION 3.5 MG/ML), ONE TIME
     Route: 042
  34. AUGMENTIN [Concomitant]
     Active Substance: AMOXICILLIN\CLAVULANATE POTASSIUM
     Indication: Product used for unknown indication
  35. POTASSIUM [Concomitant]
     Active Substance: POTASSIUM
     Indication: Product used for unknown indication

REACTIONS (26)
  - Perineal necrosis [Unknown]
  - Crohn^s disease [Not Recovered/Not Resolved]
  - Wound infection [Not Recovered/Not Resolved]
  - Musculoskeletal discomfort [Unknown]
  - Wound secretion [Not Recovered/Not Resolved]
  - Diverticulum intestinal [Unknown]
  - Fournier^s gangrene [Unknown]
  - Proctalgia [Unknown]
  - Mobility decreased [Unknown]
  - Scrotal abscess [Unknown]
  - Perirectal abscess [Unknown]
  - Hydrocele [Unknown]
  - Spondylolysis [Unknown]
  - Flatulence [Unknown]
  - Scrotal pain [Unknown]
  - Perineal cellulitis [Unknown]
  - Hypochloraemia [Unknown]
  - Hyponatraemia [Unknown]
  - Perineal pain [Unknown]
  - Hypokalaemia [Unknown]
  - Chills [Unknown]
  - Groin pain [Unknown]
  - Gastrointestinal oedema [Unknown]
  - Obesity [Unknown]
  - Anal abscess [Unknown]
  - Pain [Unknown]

NARRATIVE: CASE EVENT DATE: 20240513
